FAERS Safety Report 14254694 (Version 1)
Quarter: 2017Q4

REPORT INFORMATION
  Report Type: Spontaneous
  Country: AU (occurrence: AU)
  Receive Date: 20171206
  Receipt Date: 20171206
  Transmission Date: 20180321
  Serious: Yes (Other)
  Sender: FDA-Public Use
  Company Number: AU-ASTELLAS-2017US050405

PATIENT
  Age: 78 Year
  Sex: Female

DRUGS (2)
  1. MIRABEGRON [Suspect]
     Active Substance: MIRABEGRON
     Indication: HYPERTONIC BLADDER
     Route: 048
     Dates: start: 20171110, end: 20171116
  2. AROPAX [Concomitant]
     Active Substance: PAROXETINE HYDROCHLORIDE
     Indication: PRODUCT USED FOR UNKNOWN INDICATION
     Route: 065

REACTIONS (5)
  - Disturbance in attention [Unknown]
  - Road traffic accident [Unknown]
  - Abnormal behaviour [Recovered/Resolved]
  - Gait disturbance [Recovered/Resolved]
  - Muscular weakness [Recovered/Resolved]
